FAERS Safety Report 10160859 (Version 1)
Quarter: 2014Q2

REPORT INFORMATION
  Report Type: Spontaneous
  Country: FR (occurrence: FR)
  Receive Date: 20140508
  Receipt Date: 20140508
  Transmission Date: 20141212
  Serious: Yes (Hospitalization)
  Sender: FDA-Public Use
  Company Number: FR-WATSON-2014-09629

PATIENT
  Age: 84 Year
  Sex: Male

DRUGS (3)
  1. TRELSTAR (WATSON LABORATORIES) [Suspect]
     Indication: PROSTATE CANCER
     Dosage: 22.5 MG,Q6 MOMTHS
     Route: 030
     Dates: end: 20140203
  2. CASODEX [Suspect]
     Indication: PROSTATE CANCER
     Dosage: UNK, DAILY
     Route: 048
     Dates: end: 20140203
  3. DISTILBENE [Suspect]
     Indication: PROSTATE CANCER
     Dosage: UNK UNK, DAILY
     Route: 048
     Dates: end: 20140203

REACTIONS (2)
  - Pulmonary fibrosis [Recovered/Resolved]
  - Condition aggravated [Recovered/Resolved]
